FAERS Safety Report 15653583 (Version 1)
Quarter: 2018Q4

REPORT INFORMATION
  Report Type: Spontaneous
  Country: US (occurrence: US)
  Receive Date: 20181124
  Receipt Date: 20181124
  Transmission Date: 20190205
  Serious: No
  Sender: FDA-Public Use
  Company Number: US-APOTEX-2018AP024034

PATIENT
  Sex: Male

DRUGS (4)
  1. SEROQUEL [Interacting]
     Active Substance: QUETIAPINE FUMARATE
     Indication: ANXIETY
     Route: 065
  2. PAXIL [Suspect]
     Active Substance: PAROXETINE HYDROCHLORIDE
     Indication: ANXIETY
     Route: 065
  3. PROZAC [Interacting]
     Active Substance: FLUOXETINE HYDROCHLORIDE
     Indication: ANXIETY
     Route: 065
  4. ZYPREXA [Interacting]
     Active Substance: OLANZAPINE
     Indication: ANXIETY
     Route: 065

REACTIONS (9)
  - Ill-defined disorder [Unknown]
  - Drug intolerance [Unknown]
  - Drug interaction [Unknown]
  - Product prescribing error [Unknown]
  - Drug ineffective [Unknown]
  - Nervous system disorder [Unknown]
  - Feeling abnormal [Unknown]
  - Mood swings [Not Recovered/Not Resolved]
  - Confusional state [Unknown]
